FAERS Safety Report 4598284-2 (Version None)
Quarter: 2005Q1

REPORT INFORMATION
  Report Type: 
  Country: None (occurrence: None)
  Receive Date: 20050304
  Receipt Date: 20040612
  Transmission Date: 20050727
  Serious: Yes (Other)
  Sender: FDA-Public Use
  Company Number: PHEH2004US06437

PATIENT
  Age: 57 Year
  Sex: Female
  Weight: 44 kg

DRUGS (9)
  1. PROCRIT [Concomitant]
     Dosage: 40000 UNITS/ QW
     Dates: start: 20000929, end: 20020926
  2. PROCRIT [Concomitant]
     Dosage: 40,000 QW
     Dates: start: 20021126, end: 20030207
  3. PEPCID [Concomitant]
     Dosage: 20 MG, UNK
     Dates: start: 20000426, end: 20040620
  4. ARANESP [Concomitant]
     Indication: ANAEMIA
     Dosage: 200 MCG/ Q2WKS
     Dates: start: 20030221
  5. AREDIA [Suspect]
     Indication: OSTEOPOROSIS
     Dosage: 90 MG, QMO
     Dates: start: 20000606, end: 20020620
  6. ZOMETA [Suspect]
     Indication: OSTEOPOROSIS
     Dosage: 4 MG, QMO
     Dates: start: 20020620, end: 20031201
  7. VELCADE [Concomitant]
  8. THALIDOMIDE [Concomitant]
     Dosage: 400 MG, QD
     Dates: start: 19991109
  9. DECADRON [Concomitant]

REACTIONS (20)
  - ASEPTIC NECROSIS BONE [None]
  - CATARACT OPERATION [None]
  - DIARRHOEA [None]
  - FIBROMA [None]
  - GINGIVAL INFECTION [None]
  - GINGIVAL PAIN [None]
  - HAEMOGLOBIN DECREASED [None]
  - HYPOAESTHESIA ORAL [None]
  - INFECTION [None]
  - INFLAMMATION [None]
  - MUSCLE SPASMS [None]
  - ORAL PAIN [None]
  - OSTEONECROSIS [None]
  - PYREXIA [None]
  - SWELLING [None]
  - TENDERNESS [None]
  - TOOTH EXTRACTION [None]
  - TOOTH LOSS [None]
  - VIRAL UPPER RESPIRATORY TRACT INFECTION [None]
  - VISUAL ACUITY REDUCED [None]
